FAERS Safety Report 8707310 (Version 3)
Quarter: 2012Q4

REPORT INFORMATION
  Report Type: 
  Country: US (occurrence: US)
  Receive Date: 20120803
  Receipt Date: 20121030
  Transmission Date: 20130627
  Serious: Yes (Other)
  Sender: FDA-Public Use
  Company Number: US-ELI_LILLY_AND_COMPANY-US201207008045

PATIENT
  Age: 48 None
  Sex: Female
  Weight: 79.37 kg

DRUGS (7)
  1. BYDUREON [Suspect]
     Indication: TYPE 2 DIABETES MELLITUS
     Dosage: 2 mg, weekly (1/W)
     Route: 058
     Dates: start: 20120612, end: 20120703
  2. JANUVIA [Concomitant]
     Indication: TYPE 2 DIABETES MELLITUS
     Dosage: UNK, unknown
     Route: 048
     Dates: start: 201009, end: 20120611
  3. JANUVIA [Concomitant]
     Dosage: UNK, unknown
     Route: 048
     Dates: start: 20120705
  4. GLIMEPIRIDE [Concomitant]
     Indication: TYPE 2 DIABETES MELLITUS
     Dosage: 1 mg, qd
     Route: 048
     Dates: start: 200901
  5. WELCHOL [Concomitant]
     Indication: BLOOD CHOLESTEROL
     Dosage: 3 DF, UNK
     Route: 048
     Dates: start: 201201
  6. GABAPENTIN [Concomitant]
     Indication: DYSAESTHESIA
     Dosage: 600 mg, qid
     Dates: start: 201002
  7. L-THYROXINE [Concomitant]
     Indication: HYPOTHYROIDISM
     Dosage: UNK UNK, qd
     Dates: start: 2005

REACTIONS (13)
  - Pharyngeal oedema [Recovered/Resolved]
  - Dyspnoea [Recovered/Resolved]
  - Local swelling [Recovered/Resolved]
  - Anaphylactic reaction [Recovered/Resolved]
  - Dysphagia [Recovered/Resolved]
  - Oropharyngeal pain [Recovered/Resolved]
  - Malaise [Recovered/Resolved]
  - Chills [Recovered/Resolved]
  - Injection site nodule [Recovered/Resolved]
  - Asthenia [Recovered/Resolved]
  - Nausea [Recovered/Resolved]
  - Vomiting [Recovered/Resolved]
  - Dizziness [Recovered/Resolved]
